FAERS Safety Report 14752036 (Version 3)
Quarter: 2018Q3

REPORT INFORMATION
  Report Type: Spontaneous
  Country: JP (occurrence: JP)
  Receive Date: 20180412
  Receipt Date: 20180817
  Transmission Date: 20181010
  Serious: Yes (Other)
  Sender: FDA-Public Use
  Company Number: JP-ELI_LILLY_AND_COMPANY-JP201804002740

PATIENT
  Age: 76 Year
  Sex: Female

DRUGS (4)
  1. KYTRIL [Concomitant]
     Active Substance: GRANISETRON HYDROCHLORIDE
     Indication: PREMEDICATION
     Route: 041
  2. DECADRON (DEXAMETHASONE SODIUM PHOSPHATE) [Concomitant]
     Active Substance: DEXAMETHASONE SODIUM PHOSPHATE
     Indication: PREMEDICATION
  3. TAXOL [Suspect]
     Active Substance: PACLITAXEL
     Indication: LARYNGEAL CANCER
     Dosage: 80 MG/M2, UNKNOWN
     Route: 041
     Dates: start: 20180403
  4. ERBITUX [Suspect]
     Active Substance: CETUXIMAB
     Indication: LARYNGEAL CANCER
     Dosage: 400 MG/M2, UNKNOWN
     Route: 041
     Dates: start: 20180403

REACTIONS (2)
  - Off label use [Unknown]
  - Infusion related reaction [Recovered/Resolved]

NARRATIVE: CASE EVENT DATE: 20180403
